FAERS Safety Report 10418861 (Version 1)
Quarter: 2014Q2

REPORT INFORMATION
  Report Type: Report from Study
  Country: US (occurrence: None)
  Receive Date: 20140627
  Receipt Date: 20140627
  Transmission Date: 20141212
  Serious: No
  Sender: FDA-Public Use
  Company Number: CABO-14004303

PATIENT
  Age: 49 Year
  Sex: Male

DRUGS (1)
  1. COMETRIQ [Suspect]
     Indication: RENAL CANCER
     Route: 048
     Dates: start: 20140518

REACTIONS (6)
  - Skin discolouration [None]
  - Dyspnoea [None]
  - Blood pressure increased [None]
  - Dysphonia [None]
  - Fatigue [None]
  - Off label use [None]
